FAERS Safety Report 20722121 (Version 1)
Quarter: 2022Q2

REPORT INFORMATION
  Report Type: Spontaneous
  Country: US (occurrence: US)
  Receive Date: 20220418
  Receipt Date: 20220418
  Transmission Date: 20220721
  Serious: No
  Sender: FDA-Public Use
  Company Number: US-ABBVIE-21K-163-3949190-00

PATIENT
  Sex: Male
  Weight: 30.418 kg

DRUGS (5)
  1. LUPRON DEPOT-PED [Suspect]
     Active Substance: LEUPROLIDE ACETATE
     Indication: Precocious puberty
     Route: 030
     Dates: start: 20210129, end: 20210129
  2. LUPRON DEPOT-PED [Suspect]
     Active Substance: LEUPROLIDE ACETATE
     Indication: Silver-Russell syndrome
  3. MIRALAX [Concomitant]
     Active Substance: POLYETHYLENE GLYCOL 3350
     Indication: Constipation
  4. CYPROHEPTADINE [Concomitant]
     Active Substance: CYPROHEPTADINE
     Indication: Appetite disorder
  5. NORDITROPIN [Concomitant]
     Active Substance: SOMATROPIN
     Indication: Product used for unknown indication

REACTIONS (6)
  - Off label use [Unknown]
  - Flank pain [Recovered/Resolved]
  - Dysuria [Recovering/Resolving]
  - Injection site pain [Not Recovered/Not Resolved]
  - Pyrexia [Recovered/Resolved]
  - Injection site abscess sterile [Not Recovered/Not Resolved]

NARRATIVE: CASE EVENT DATE: 20210101
